FAERS Safety Report 5120585-X (Version None)
Quarter: 2006Q4

REPORT INFORMATION
  Report Type: 
  Country: None (occurrence: None)
  Receive Date: 20061004
  Receipt Date: 20061003
  Transmission Date: 20070319
  Serious: Yes (Other)
  Sender: FDA-Public Use
  Company Number: US-GLAXOSMITHKLINE-A0622239A

PATIENT
  Age: 40 Year
  Sex: Male

DRUGS (3)
  1. NICORETTE [Suspect]
     Indication: DRUG USE FOR UNKNOWN INDICATION
     Dosage: 4MG SEE DOSAGE TEXT
     Route: 002
  2. DEPAKOTE [Concomitant]
  3. SUBOXONE [Concomitant]

REACTIONS (4)
  - DEPENDENCE [None]
  - DRUG WITHDRAWAL SYNDROME [None]
  - FEELING ABNORMAL [None]
  - INTENTIONAL DRUG MISUSE [None]
